FAERS Safety Report 7450226-8 (Version None)
Quarter: 2011Q2

REPORT INFORMATION
  Report Type: 
  Country: None (occurrence: None)
  Receive Date: 20110422
  Receipt Date: 20110408
  Transmission Date: 20111010
  Serious: Yes (Congenital Anomaly)
  Sender: FDA-Public Use
  Company Number: 030988

PATIENT

DRUGS (1)
  1. LACOSAMIDE [Suspect]
     Dosage: (TRANSPLACENTAL)
     Route: 064

REACTIONS (4)
  - DRUG EXPOSURE DURING PREGNANCY [None]
  - PREMATURE BABY [None]
  - HYDRONEPHROSIS [None]
  - CRYPTORCHISM [None]
